FAERS Safety Report 11259660 (Version 1)
Quarter: 2015Q3

REPORT INFORMATION
  Report Type: Spontaneous
  Country: US (occurrence: None)
  Receive Date: 20150709
  Receipt Date: 20150709
  Transmission Date: 20151125
  Serious: No
  Sender: FDA-Public Use
  Company Number: None

PATIENT
  Age: 39 Year
  Sex: Female
  Weight: 72.58 kg

DRUGS (4)
  1. BUPROPION. [Concomitant]
     Active Substance: BUPROPION
  2. UNISOM SLEEPTABS [Concomitant]
     Active Substance: DOXYLAMINE SUCCINATE
  3. MELATONIN [Concomitant]
     Active Substance: MELATONIN
  4. BACTRIM [Suspect]
     Active Substance: SULFAMETHOXAZOLE\TRIMETHOPRIM
     Indication: URINARY TRACT INFECTION
     Route: 048
     Dates: start: 20150630, end: 20150630

REACTIONS (8)
  - Paraesthesia [None]
  - Swelling face [None]
  - Lip swelling [None]
  - Skin exfoliation [None]
  - Oral pain [None]
  - Pruritus [None]
  - Facial pain [None]
  - Erythema [None]

NARRATIVE: CASE EVENT DATE: 20150630
